FAERS Safety Report 4738544-5 (Version None)
Quarter: 2005Q3

REPORT INFORMATION
  Report Type: 
  Country: None (occurrence: None)
  Receive Date: 20050803
  Receipt Date: 20050720
  Transmission Date: 20060218
  Serious: Yes (Other)
  Sender: FDA-Public Use
  Company Number: 2005P1000138

PATIENT
  Age: 64 Year
  Sex: Male

DRUGS (7)
  1. NICARDIPINE HCL [Suspect]
     Indication: HYPERTENSION
     Dosage: 0.8 MG; 1X; IV
     Route: 042
  2. DIAZEPAM [Suspect]
     Dosage: 10 MG; X1; IV
     Route: 042
  3. PENTAZOCINE LACTATE [Suspect]
     Dosage: 30 MG; X1; IV
     Route: 042
  4. LIDOCAINE HCL INJ [Suspect]
     Dosage: 5 ML; X1; IV
     Route: 042
  5. OXYGEN [Concomitant]
  6. ANTIHYPERTENSIVES [Concomitant]
  7. ORAL ANTIDIABETICS [Concomitant]

REACTIONS (2)
  - ATRIAL FIBRILLATION [None]
  - TACHYCARDIA [None]
